FAERS Safety Report 4482062-9 (Version None)
Quarter: 2004Q4

REPORT INFORMATION
  Report Type: 
  Country: None (occurrence: None)
  Receive Date: 20041020
  Receipt Date: 20041006
  Transmission Date: 20050328
  Serious: Yes (Other)
  Sender: FDA-Public Use
  Company Number: GBT041001702

PATIENT
  Age: 52 Year
  Sex: Female
  Weight: 117 kg

DRUGS (4)
  1. GEMCITABINE HYDROCHLORIDE                (GEMCITABINE) [Suspect]
     Indication: BREAST CANCER
     Dosage: 2000 MG
     Route: 042
  2. PACLITAXEL [Suspect]
     Indication: BREAST CANCER
     Dosage: 350 MG
  3. EPIRUBICIN [Suspect]
     Indication: BREAST CANCER
     Dosage: 180 MG
     Dates: end: 20040820
  4. CYCLOPHOSPHAMIDE [Suspect]
     Indication: BREAST CANCER
     Dosage: 1200 MG
     Dates: end: 20040820

REACTIONS (2)
  - CONTUSION [None]
  - ERYTHEMA NODOSUM [None]
